FAERS Safety Report 14145729 (Version 3)
Quarter: 2018Q1

REPORT INFORMATION
  Report Type: Report from Study
  Country: None (occurrence: US)
  Receive Date: 20171031
  Receipt Date: 20180117
  Transmission Date: 20180508
  Serious: Yes (Hospitalization)
  Sender: FDA-Public Use
  Company Number: US-ABBVIE-17P-163-2144749-00

PATIENT
  Age: 38 Year
  Sex: Male

DRUGS (1)
  1. MAVYRET [Suspect]
     Active Substance: GLECAPREVIR\PIBRENTASVIR
     Indication: CHRONIC HEPATITIS C
     Route: 048
     Dates: start: 20171017

REACTIONS (10)
  - Sickle cell anaemia [Not Recovered/Not Resolved]
  - Chest pain [Recovering/Resolving]
  - Pain [Not Recovered/Not Resolved]
  - Sickle cell anaemia with crisis [Unknown]
  - Blood bilirubin increased [Unknown]
  - Sickle cell anaemia with crisis [Not Recovered/Not Resolved]
  - Bronchitis [Recovering/Resolving]
  - White blood cell count increased [Recovering/Resolving]
  - Blood bilirubin increased [Recovering/Resolving]
  - Red blood cell count decreased [Unknown]

NARRATIVE: CASE EVENT DATE: 20171019
